FAERS Safety Report 7040990-4 (Version None)
Quarter: 2010Q4

REPORT INFORMATION
  Report Type: 
  Country: None (occurrence: None)
  Receive Date: 20101013
  Receipt Date: 20100930
  Transmission Date: 20110411
  Serious: Yes (Hospitalization)
  Sender: FDA-Public Use
  Company Number: US-ELI_LILLY_AND_COMPANY-US201008008528

PATIENT
  Sex: Female

DRUGS (12)
  1. FORTEO [Suspect]
     Indication: OSTEOPOROSIS
     Dosage: 20 UG, DAILY (1/D)
     Dates: start: 20090810
  2. LOVASTATIN [Concomitant]
  3. ACIPHEX [Concomitant]
  4. LIZINOPRIL [Concomitant]
  5. BISOPROLOL [Concomitant]
  6. FLORASTOR [Concomitant]
  7. ASCORBIC ACID [Concomitant]
  8. TYLENOL-500 [Concomitant]
  9. TUMS [Concomitant]
  10. MACRODANTIN [Concomitant]
     Indication: CYSTITIS
  11. MAGNESIUM [Concomitant]
  12. VANCOMYCIN [Concomitant]
     Indication: CLOSTRIDIAL INFECTION

REACTIONS (8)
  - ASTHENIA [None]
  - CANDIDIASIS [None]
  - CLOSTRIDIAL INFECTION [None]
  - COLITIS [None]
  - CYSTITIS [None]
  - DEHYDRATION [None]
  - URINARY TRACT INFECTION [None]
  - WEIGHT DECREASED [None]
